FAERS Safety Report 23497472 (Version 1)
Quarter: 2024Q1

REPORT INFORMATION
  Report Type: Spontaneous
  Country: US (occurrence: None)
  Receive Date: 20240207
  Receipt Date: 20240207
  Transmission Date: 20240410
  Serious: No
  Sender: FDA-Public Use
  Company Number: US-ROCHE-3429144

PATIENT
  Age: 59 Year
  Sex: Female

DRUGS (9)
  1. XOLAIR [Suspect]
     Active Substance: OMALIZUMAB
     Indication: Product used for unknown indication
     Route: 065
     Dates: start: 20230918
  2. DULOXETINE [Concomitant]
     Active Substance: DULOXETINE
  3. BUSPIRONE [Concomitant]
     Active Substance: BUSPIRONE HYDROCHLORIDE
  4. ACETAZOLAMIDE [Concomitant]
     Active Substance: ACETAZOLAMIDE
  5. MODAFINIL [Concomitant]
     Active Substance: MODAFINIL
  6. LEVOTHYROXINE [Concomitant]
     Active Substance: LEVOTHYROXINE\LEVOTHYROXINE SODIUM
  7. ALPRAZOLAM [Concomitant]
     Active Substance: ALPRAZOLAM
  8. KESIMPTA [Concomitant]
     Active Substance: OFATUMUMAB
  9. AUBAGIO [Concomitant]
     Active Substance: TERIFLUNOMIDE

REACTIONS (1)
  - White blood cell count decreased [Unknown]
